FAERS Safety Report 7799977-6 (Version None)
Quarter: 2011Q4

REPORT INFORMATION
  Report Type: 
  Country: None (occurrence: None)
  Receive Date: 20111006
  Receipt Date: 20110926
  Transmission Date: 20120403
  Serious: Yes (Hospitalization)
  Sender: FDA-Public Use
  Company Number: MY-JNJFOC-20110301172

PATIENT
  Sex: Male
  Weight: 64 kg

DRUGS (3)
  1. PALIPERIDONE [Suspect]
     Indication: SCHIZOPHRENIA
     Route: 030
     Dates: start: 20110119, end: 20110224
  2. LORAZEPAM [Concomitant]
     Indication: POOR QUALITY SLEEP
     Dates: start: 20110118
  3. OLANZAPINE [Concomitant]
     Indication: SCHIZOPHRENIA
     Dates: start: 20101012, end: 20110224

REACTIONS (1)
  - INTENTIONAL SELF-INJURY [None]
